FAERS Safety Report 12657765 (Version 1)
Quarter: 2016Q3

REPORT INFORMATION
  Report Type: Spontaneous
  Country: US (occurrence: US)
  Receive Date: 20160817
  Receipt Date: 20160817
  Transmission Date: 20161109
  Serious: No
  Sender: FDA-Public Use
  Company Number: US-ASTRAZENECA-2016SE85446

PATIENT
  Sex: Male
  Weight: 83.5 kg

DRUGS (1)
  1. MOVANTIK [Suspect]
     Active Substance: NALOXEGOL OXALATE
     Indication: CONSTIPATION
     Route: 048
     Dates: start: 20160724

REACTIONS (3)
  - Bowel movement irregularity [Unknown]
  - Gastric disorder [Unknown]
  - Nausea [Unknown]
